FAERS Safety Report 5035170-8 (Version None)
Quarter: 2006Q2

REPORT INFORMATION
  Report Type: 
  Country: None (occurrence: None)
  Receive Date: 20060622
  Receipt Date: 20060607
  Transmission Date: 20061013
  Serious: Yes (Life-Threatening)
  Sender: FDA-Public Use
  Company Number: GXKR2006AU03203

PATIENT
  Age: 40 Year
  Sex: Male

DRUGS (5)
  1. AMISULPRIDE (NGX) (AMISULPRIDE) UNKNOWN [Suspect]
     Dosage: 32 G, ORAL
     Route: 048
  2. AMITRIPTYLINE HCL [Suspect]
     Indication: DEPRESSION
     Dosage: 1.25 G, ORAL
     Route: 048
  3. MIRTAZAPINE [Suspect]
     Dosage: 300 MG, ORAL
     Route: 048
  4. OMEPRAZOLE [Suspect]
     Dosage: ORAL
     Route: 048
  5. VALPROIC ACID [Suspect]
     Dosage: 7 G, ORAL
     Route: 048

REACTIONS (6)
  - BUNDLE BRANCH BLOCK LEFT [None]
  - ELECTROCARDIOGRAM QRS COMPLEX PROLONGED [None]
  - ELECTROCARDIOGRAM QT PROLONGED [None]
  - INTENTIONAL OVERDOSE [None]
  - TORSADE DE POINTES [None]
  - VENTRICULAR TACHYCARDIA [None]
